FAERS Safety Report 8813523 (Version 1)
Quarter: 2012Q4

REPORT INFORMATION
  Report Type: 
  Country: US (occurrence: US)
  Receive Date: 20120927
  Receipt Date: 20120927
  Transmission Date: 20130627
  Serious: No
  Sender: FDA-Public Use
  Company Number: US-AMGEN-USASP2012039909

PATIENT
  Age: 81 Year
  Sex: Female

DRUGS (11)
  1. PROLIA [Suspect]
     Indication: OSTEOPOROSIS POSTMENOPAUSAL
     Dosage: UNK UNK, q6mo
     Dates: start: 2011
  2. EVOXAC [Concomitant]
     Dosage: UNK
  3. SYNTHROID [Concomitant]
     Dosage: UNK
  4. PROTONIX [Concomitant]
     Dosage: UNK
  5. NEURONTIN [Concomitant]
     Dosage: UNK
  6. ARICEPT [Concomitant]
     Dosage: UNK
  7. LASIX                              /00032601/ [Concomitant]
     Dosage: UNK
  8. PAXIL [Concomitant]
     Dosage: UNK
  9. POTASSIUM [Concomitant]
     Dosage: UNK
  10. MAGNESIUM [Concomitant]
     Dosage: UNK
  11. OSCAL                              /00514701/ [Concomitant]
     Dosage: UNK

REACTIONS (2)
  - Dermatitis bullous [Recovering/Resolving]
  - Drug hypersensitivity [Recovered/Resolved]
